FAERS Safety Report 18942796 (Version 6)
Quarter: 2024Q3

REPORT INFORMATION
  Report Type: Report from Study
  Country: GB (occurrence: GB)
  Receive Date: 20210225
  Receipt Date: 20240902
  Transmission Date: 20241016
  Serious: Yes (Hospitalization)
  Sender: ROCHE
  Company Number: GB-ROCHE-2774435

PATIENT
  Age: 63 Year
  Sex: Male
  Weight: 80.1 kg

DRUGS (14)
  1. ATEZOLIZUMAB [Suspect]
     Active Substance: ATEZOLIZUMAB
     Indication: Non-small cell lung cancer metastatic
     Route: 041
     Dates: start: 20210210
  2. BEVACIZUMAB [Suspect]
     Active Substance: BEVACIZUMAB
     Indication: Non-small cell lung cancer metastatic
     Route: 065
     Dates: start: 20210210
  3. CARBOPLATIN [Suspect]
     Active Substance: CARBOPLATIN
     Indication: Non-small cell lung cancer metastatic
     Route: 065
     Dates: start: 20210210
  4. PACLITAXEL [Suspect]
     Active Substance: PACLITAXEL
     Indication: Non-small cell lung cancer metastatic
     Route: 065
     Dates: start: 20210210
  5. METFORMIN [Concomitant]
     Active Substance: METFORMIN HYDROCHLORIDE
     Indication: Type 2 diabetes mellitus
     Dates: start: 20140324
  6. AMLODIPINE [Concomitant]
     Active Substance: AMLODIPINE BESYLATE
     Indication: Hypertension
     Dates: start: 20120203
  7. ATORVASTATIN [Concomitant]
     Active Substance: ATORVASTATIN
     Indication: Prophylaxis
     Dates: start: 20120625
  8. CARBOPLATIN [Concomitant]
     Active Substance: CARBOPLATIN
     Indication: Neoplasm malignant
  9. GEMCITABINE [Concomitant]
     Active Substance: GEMCITABINE
     Indication: Neoplasm malignant
  10. VINORELBINE [Concomitant]
     Active Substance: VINORELBINE TARTRATE
     Indication: Neoplasm malignant
  11. AFATINIB [Concomitant]
     Active Substance: AFATINIB
     Indication: Neoplasm malignant
  12. GEFITINIB [Concomitant]
     Active Substance: GEFITINIB
     Indication: Neoplasm malignant
  13. OSIMERTINIB [Concomitant]
     Active Substance: OSIMERTINIB
     Indication: Neoplasm malignant
  14. CISPLATIN [Concomitant]
     Active Substance: CISPLATIN
     Indication: Neoplasm malignant

REACTIONS (4)
  - Fall [Unknown]
  - Hyponatraemia [Recovered/Resolved]
  - Nausea [Recovering/Resolving]
  - Vomiting [Recovered/Resolved]

NARRATIVE: CASE EVENT DATE: 20210214
